FAERS Safety Report 12092242 (Version 1)
Quarter: 2016Q1

REPORT INFORMATION
  Report Type: Spontaneous
  Country: US (occurrence: US)
  Receive Date: 20160219
  Receipt Date: 20160219
  Transmission Date: 20160526
  Serious: No
  Sender: FDA-Public Use
  Company Number: US-ALLERGAN-1518305US

PATIENT
  Age: 4 Year
  Sex: Female

DRUGS (4)
  1. FLONASE [Concomitant]
     Active Substance: FLUTICASONE PROPIONATE
     Indication: SINUSITIS
     Dosage: UNK
     Route: 045
  2. FML [Suspect]
     Active Substance: FLUOROMETHOLONE
     Indication: PSEUDOMONAS INFECTION
     Dosage: UNK UNK, QAM
     Route: 047
     Dates: start: 201508
  3. FML [Suspect]
     Active Substance: FLUOROMETHOLONE
     Indication: PSEUDOMONAS INFECTION
     Dosage: UNK, QHS
     Route: 047
     Dates: start: 201508
  4. AUGMENTIN [Concomitant]
     Active Substance: AMOXICILLIN\CLAVULANATE POTASSIUM
     Indication: SINUSITIS
     Dosage: UNK

REACTIONS (3)
  - Ocular hyperaemia [Not Recovered/Not Resolved]
  - Eye irritation [Not Recovered/Not Resolved]
  - Eye pain [Not Recovered/Not Resolved]

NARRATIVE: CASE EVENT DATE: 201509
